FAERS Safety Report 6401620-5 (Version None)
Quarter: 2009Q4

REPORT INFORMATION
  Report Type: 
  Country: None (occurrence: None)
  Receive Date: 20091015
  Receipt Date: 20091009
  Transmission Date: 20100525
  Serious: Yes (Death, Other)
  Sender: FDA-Public Use
  Company Number: JP-AVENTIS-200912555JP

PATIENT
  Age: 72 Year
  Sex: Male
  Weight: 39.55 kg

DRUGS (8)
  1. TAXOTERE [Suspect]
     Route: 041
     Dates: start: 20090825, end: 20090825
  2. PREDNISOLONE [Suspect]
     Route: 048
     Dates: start: 20090825
  3. GASTER D [Suspect]
     Route: 048
     Dates: start: 20090825
  4. ZOMETA [Suspect]
     Route: 041
     Dates: start: 20090825, end: 20090825
  5. HYPEN [Concomitant]
     Indication: CANCER PAIN
     Route: 048
     Dates: start: 20090807
  6. MUCOSTA [Concomitant]
     Route: 048
     Dates: start: 20090807
  7. LENDORMIN [Concomitant]
     Route: 048
     Dates: start: 20090825
  8. ODYNE [Concomitant]
     Dates: start: 20090301, end: 20090701

REACTIONS (2)
  - FEBRILE NEUTROPENIA [None]
  - INTERSTITIAL LUNG DISEASE [None]
